FAERS Safety Report 4599979-7 (Version None)
Quarter: 2005Q1

REPORT INFORMATION
  Report Type: 
  Country: None (occurrence: None)
  Receive Date: 20050304
  Receipt Date: 20050304
  Transmission Date: 20050727
  Serious: No
  Sender: FDA-Public Use
  Company Number: None

PATIENT
  Age: 57 Year
  Weight: 52.1637 kg

DRUGS (1)
  1. FOSAMAX [Suspect]
     Indication: OSTEOPOROSIS PROPHYLAXIS
     Dosage: ONCE WEEKLY
     Dates: start: 20050105, end: 20050112

REACTIONS (3)
  - EYE PAIN [None]
  - EYE SWELLING [None]
  - OCULAR HYPERAEMIA [None]
